FAERS Safety Report 12210193 (Version 1)
Quarter: 2016Q1

REPORT INFORMATION
  Report Type: Spontaneous
  Country: US (occurrence: None)
  Receive Date: 20160324
  Receipt Date: 20160324
  Transmission Date: 20160526
  Serious: No
  Sender: FDA-Public Use
  Company Number: None

PATIENT
  Age: 21 Year
  Sex: Female
  Weight: 83.92 kg

DRUGS (5)
  1. CYMBALTA [Concomitant]
     Active Substance: DULOXETINE HYDROCHLORIDE
  2. ORTHO TRI SPRINTEC [Concomitant]
  3. JANUVIA [Concomitant]
     Active Substance: SITAGLIPTIN PHOSPHATE
  4. CYMBALTA [Suspect]
     Active Substance: DULOXETINE HYDROCHLORIDE
     Indication: OBSESSIVE-COMPULSIVE DISORDER
     Dosage: 2 PILLS ONCE DAILY TAKEN BY MOUTH
     Route: 048
  5. CAFFEINE PILL [Concomitant]

REACTIONS (8)
  - Malaise [None]
  - Dizziness [None]
  - Anxiety [None]
  - Depression suicidal [None]
  - Hallucination, auditory [None]
  - Suicidal ideation [None]
  - Nausea [None]
  - Paranoia [None]

NARRATIVE: CASE EVENT DATE: 20160201
